FAERS Safety Report 24046128 (Version 1)
Quarter: 2024Q3

REPORT INFORMATION
  Report Type: Spontaneous
  Country: US (occurrence: None)
  Receive Date: 20240702
  Receipt Date: 20240702
  Transmission Date: 20241017
  Serious: Yes (Death)
  Sender: Public
  Company Number: None

PATIENT
  Age: 50 Year
  Sex: Male
  Weight: 104.33 kg

DRUGS (7)
  1. CLOZAPINE [Suspect]
     Active Substance: CLOZAPINE
     Indication: Schizophrenia
     Dosage: FREQUENCY : TWICE A DAY;?
     Route: 048
     Dates: start: 1995, end: 20230608
  2. ABILIFY [Concomitant]
     Active Substance: ARIPIPRAZOLE
  3. XANAX [Concomitant]
     Active Substance: ALPRAZOLAM
  4. TRAZODONE [Concomitant]
     Active Substance: TRAZODONE HYDROCHLORIDE
  5. MIRALAX [Concomitant]
     Active Substance: POLYETHYLENE GLYCOL 3350
  6. DULCOLAX NOS [Concomitant]
     Active Substance: UNSPECIFIED INGREDIENT
  7. LINZESS [Concomitant]
     Active Substance: LINACLOTIDE

REACTIONS (10)
  - Constipation [None]
  - Product communication issue [None]
  - Drug ineffective [None]
  - Small intestinal perforation [None]
  - Therapy cessation [None]
  - Thrombosis [None]
  - Staphylococcal infection [None]
  - Full blood count decreased [None]
  - Pneumonia [None]
  - Megacolon [None]

NARRATIVE: CASE EVENT DATE: 20230126
